FAERS Safety Report 18202819 (Version 3)
Quarter: 2020Q4

REPORT INFORMATION
  Report Type: Report from Study
  Country: GB (occurrence: GB)
  Receive Date: 20200827
  Receipt Date: 20201009
  Transmission Date: 20210113
  Serious: Yes (Other)
  Sender: FDA-Public Use
  Company Number: NVSC2020GB230882

PATIENT
  Sex: Male

DRUGS (1)
  1. COSENTYX [Suspect]
     Active Substance: SECUKINUMAB
     Indication: PSORIASIS
     Dosage: 300 MG, QMO
     Route: 065
     Dates: start: 20180717

REACTIONS (8)
  - Lower respiratory tract infection [Unknown]
  - Kidney infection [Unknown]
  - Immunosuppression [Unknown]
  - Haematuria [Unknown]
  - Chills [Unknown]
  - Escherichia test positive [Unknown]
  - Product dose omission issue [Unknown]
  - Pharyngitis [Unknown]
